FAERS Safety Report 9004311 (Version 6)
Quarter: 2013Q2

REPORT INFORMATION
  Report Type: Report from Study
  Country: CZ (occurrence: CZ)
  Receive Date: 20130108
  Receipt Date: 20130619
  Transmission Date: 20140414
  Serious: Yes (Hospitalization)
  Sender: FDA-Public Use
  Company Number: CZ-ASTELLAS-2013US000203

PATIENT
  Age: 72 Year
  Sex: Male

DRUGS (16)
  1. BLINDED ERLOTINIB TABLET [Suspect]
     Indication: LUNG NEOPLASM MALIGNANT
     Dosage: UNK
     Route: 048
     Dates: start: 20120507
  2. ERLOTINIB [Suspect]
     Indication: LUNG NEOPLASM MALIGNANT
     Dosage: 150 MG, UID/QD
     Route: 048
     Dates: start: 20120730
  3. RYTMONORM [Concomitant]
     Indication: ARRHYTHMIA
     Dosage: UNK
     Route: 065
     Dates: start: 201201
  4. CONCOR [Concomitant]
     Indication: HYPERTENSION
     Dosage: UNK
     Route: 065
     Dates: start: 201202
  5. LUSOPRESS [Concomitant]
     Indication: HYPERTENSION
     Dosage: UNK
     Route: 065
  6. HELICID                            /00661201/ [Concomitant]
     Indication: PRODUCT USED FOR UNKNOWN INDICATION
     Dosage: UNK
     Route: 065
     Dates: start: 201202
  7. ASPIRIN PROTECT [Concomitant]
     Indication: PRODUCT USED FOR UNKNOWN INDICATION
     Dosage: UNK
     Route: 065
     Dates: start: 201202
  8. ONBREZ [Concomitant]
     Indication: BRONCHITIS CHRONIC
     Dosage: UNK
     Route: 065
     Dates: start: 201202
  9. MIFLONID [Concomitant]
     Indication: BRONCHITIS CHRONIC
     Dosage: UNK
     Route: 065
     Dates: start: 201202
  10. FURON                              /00032601/ [Concomitant]
     Indication: HYPERTENSION
     Dosage: UNK
     Route: 065
     Dates: start: 20120418
  11. ZALDIAR [Concomitant]
     Indication: CHEST PAIN
     Dosage: UNK
     Route: 065
     Dates: start: 20120604, end: 20120607
  12. VERAL                              /00372302/ [Concomitant]
     Indication: CHEST PAIN
     Dosage: UNK
     Route: 065
     Dates: start: 20120607
  13. BACTROBAN                          /00753901/ [Concomitant]
     Indication: RASH
     Dosage: UNK
     Route: 065
     Dates: start: 20120822, end: 20120918
  14. LEVOCETIRIZINA [Concomitant]
     Indication: RASH
     Dosage: UNK
     Route: 065
     Dates: start: 20120822, end: 20120911
  15. AGAPURIN [Concomitant]
     Indication: RETINAL ARTERY OCCLUSION
     Dosage: UNK
     Route: 065
     Dates: start: 20121218
  16. AESCIN                             /00337201/ [Concomitant]
     Indication: RETINAL ARTERY OCCLUSION
     Dosage: UNK
     Route: 065
     Dates: start: 20121213

REACTIONS (1)
  - Gastric ulcer haemorrhage [Not Recovered/Not Resolved]
